FAERS Safety Report 15829167 (Version 1)
Quarter: 2019Q1

REPORT INFORMATION
  Report Type: Spontaneous
  Country: US (occurrence: US)
  Receive Date: 20190115
  Receipt Date: 20190115
  Transmission Date: 20190417
  Serious: No
  Sender: FDA-Public Use
  Company Number: US-ALLERGAN-1854324US

PATIENT
  Age: 69 Year
  Sex: Female
  Weight: 88.44 kg

DRUGS (2)
  1. RESTASIS [Suspect]
     Active Substance: CYCLOSPORINE
     Indication: RETINAL DETACHMENT
     Dosage: 2 GTT, BID
     Route: 047
     Dates: start: 20181010, end: 201811
  2. UNSPECIFIED INJECTION/ANTIBIOTIC [Concomitant]
     Indication: RETINAL DETACHMENT
     Dosage: UNK, SINGLE
     Route: 065

REACTIONS (9)
  - Ocular hyperaemia [Recovered/Resolved]
  - Eye irritation [Recovered/Resolved]
  - Ocular discomfort [Recovered/Resolved]
  - Glassy eyes [Recovered/Resolved]
  - Incorrect dose administered [Unknown]
  - Eye pain [Recovered/Resolved]
  - Off label use [Unknown]
  - Inappropriate schedule of product administration [Unknown]
  - Product container issue [Unknown]

NARRATIVE: CASE EVENT DATE: 201810
